FAERS Safety Report 4554544-2 (Version None)
Quarter: 2005Q1

REPORT INFORMATION
  Report Type: 
  Country: None (occurrence: None)
  Receive Date: 20050114
  Receipt Date: 20031007
  Transmission Date: 20050727
  Serious: Yes (Life-Threatening, Hospitalization)
  Sender: FDA-Public Use
  Company Number: GXKR2003US00555

PATIENT
  Age: 73 Year
  Sex: Female

DRUGS (2)
  1. METFORMIN (NGX) (METFORMIN) UNKNOWN [Suspect]
     Indication: DIABETES MELLITUS
     Dosage: 1000 MG, BID, ORAL
     Route: 048
  2. WARFARIN (NGX) (WARFARIN) [Suspect]
     Dosage: 5 MG

REACTIONS (13)
  - CARDIO-RESPIRATORY ARREST [None]
  - COAGULOPATHY [None]
  - DRUG LEVEL INCREASED [None]
  - EPISTAXIS [None]
  - GINGIVAL BLEEDING [None]
  - HAEMATURIA [None]
  - HAEMODIALYSIS [None]
  - HAEMORRHAGE [None]
  - LACTIC ACIDOSIS [None]
  - METABOLIC ACIDOSIS [None]
  - OBSTRUCTION [None]
  - RENAL DISORDER [None]
  - RETROPERITONEAL HAEMATOMA [None]
